FAERS Safety Report 4971006-9 (Version None)
Quarter: 2006Q2

REPORT INFORMATION
  Report Type: 
  Country: None (occurrence: None)
  Receive Date: 20060411
  Receipt Date: 20060411
  Transmission Date: 20061013
  Serious: Yes (Hospitalization)
  Sender: FDA-Public Use
  Company Number: None

PATIENT
  Sex: Female
  Weight: 81.6475 kg

DRUGS (1)
  1. GAMMAGARD LIQUID [Suspect]
     Dosage: 80 G (4 X 20 G)   Q24H X1  IV
     Route: 042
     Dates: start: 20060403

REACTIONS (1)
  - HAEMOLYSIS [None]
